FAERS Safety Report 11224307 (Version 1)
Quarter: 2015Q2

REPORT INFORMATION
  Report Type: Report from Study
  Country: ES (occurrence: ES)
  Receive Date: 20150629
  Receipt Date: 20150629
  Transmission Date: 20150821
  Serious: Yes (Other)
  Sender: FDA-Public Use
  Company Number: ES-JNJFOC-20150617336

PATIENT

DRUGS (2)
  1. SOFOSBUVIR [Suspect]
     Active Substance: SOFOSBUVIR
     Indication: HEPATITIS C
  2. OLYSIO [Suspect]
     Active Substance: SIMEPREVIR
     Indication: HEPATITIS C

REACTIONS (8)
  - Oral herpes [Unknown]
  - Asthenia [Unknown]
  - Blood bilirubin increased [Unknown]
  - Skin reaction [Unknown]
  - Nausea [Unknown]
  - Headache [Unknown]
  - Influenza [Unknown]
  - Haemoglobin decreased [Unknown]
